FAERS Safety Report 10551156 (Version 1)
Quarter: 2014Q4

REPORT INFORMATION
  Report Type: Spontaneous
  Country: DE (occurrence: DE)
  Receive Date: 20141029
  Receipt Date: 20141029
  Transmission Date: 20150529
  Serious: Yes (Hospitalization)
  Sender: FDA-Public Use
  Company Number: DE-DRREDDYS-GER/GER/14/0043962

PATIENT
  Age: 49 Year
  Sex: Female
  Weight: 60 kg

DRUGS (1)
  1. CITALOPRAM [Suspect]
     Active Substance: CITALOPRAM HYDROBROMIDE
     Indication: DEPRESSION
     Dates: start: 201404

REACTIONS (4)
  - Urinary retention [Recovering/Resolving]
  - Renal colic [Recovering/Resolving]
  - Ureteric dilatation [Recovering/Resolving]
  - Urinary tract disorder [Recovering/Resolving]

NARRATIVE: CASE EVENT DATE: 20140904
